FAERS Safety Report 15922960 (Version 3)
Quarter: 2019Q1

REPORT INFORMATION
  Report Type: Spontaneous
  Country: US (occurrence: US)
  Receive Date: 20190205
  Receipt Date: 20190325
  Transmission Date: 20190417
  Serious: No
  Sender: FDA-Public Use
  Company Number: US-ALLERGAN-1824639US

PATIENT
  Age: 63 Year
  Sex: Female

DRUGS (2)
  1. LATISSE [Suspect]
     Active Substance: BIMATOPROST
     Indication: GROWTH OF EYELASHES
     Dosage: 1 APPLICATION, QHS
     Route: 061
     Dates: start: 20180501, end: 20180503
  2. BOTOX COSMETIC [Suspect]
     Active Substance: ONABOTULINUMTOXINA
     Indication: PRODUCT USED FOR UNKNOWN INDICATION
     Dosage: 45 UNITS, SINGLE
     Route: 030
     Dates: start: 20180501, end: 20180501

REACTIONS (15)
  - Conjunctivitis [Recovering/Resolving]
  - Urticaria [Recovering/Resolving]
  - Headache [Recovered/Resolved]
  - Motion sickness [Recovering/Resolving]
  - Malaise [Recovering/Resolving]
  - Inflammation of lacrimal passage [Recovering/Resolving]
  - Dizziness [Recovering/Resolving]
  - Visual impairment [Recovering/Resolving]
  - Vision blurred [Recovering/Resolving]
  - Ocular hyperaemia [Recovering/Resolving]
  - Photophobia [Recovering/Resolving]
  - Eye irritation [Recovering/Resolving]
  - Inflammation [Recovering/Resolving]
  - Irritability [Recovering/Resolving]
  - Eye swelling [Recovering/Resolving]

NARRATIVE: CASE EVENT DATE: 20180504
